FAERS Safety Report 22650807 (Version 1)
Quarter: 2023Q2

REPORT INFORMATION
  Report Type: Spontaneous
  Country: US (occurrence: US)
  Receive Date: 20230628
  Receipt Date: 20230628
  Transmission Date: 20230722
  Serious: Yes (Hospitalization)
  Sender: FDA-Public Use
  Company Number: US-002147023-NVSC2023US143690

PATIENT
  Age: 75 Year
  Sex: Male

DRUGS (3)
  1. BUPROPION [Interacting]
     Active Substance: BUPROPION
     Indication: Depression
     Dosage: UNK (HIGH DOSE)
     Route: 065
  2. AMANTADINE [Interacting]
     Active Substance: AMANTADINE
     Indication: Parkinson^s disease
     Dosage: UNK
     Route: 065
  3. PREDNISONE [Suspect]
     Active Substance: PREDNISONE
     Indication: Pain
     Dosage: UNK
     Route: 065

REACTIONS (2)
  - Delirium [Recovered/Resolved]
  - Drug interaction [Unknown]
